FAERS Safety Report 21166680 (Version 1)
Quarter: 2022Q3

REPORT INFORMATION
  Report Type: Spontaneous
  Country: US (occurrence: None)
  Receive Date: 20220803
  Receipt Date: 20220803
  Transmission Date: 20221027
  Serious: Yes (unspecified)
  Sender: FDA-Public Use
  Company Number: None

PATIENT
  Age: 47 Year
  Sex: Male
  Weight: 76 kg

DRUGS (3)
  1. OXALIPLATIN [Suspect]
     Active Substance: OXALIPLATIN
     Indication: Colon cancer
     Dosage: FREQUENCY : ONCE;?
     Route: 041
     Dates: start: 20220725, end: 20220725
  2. DIPHENHYDRAMINE [Concomitant]
     Dates: start: 20220725, end: 20220725
  3. HYDROCORTISONE [Concomitant]
     Dates: start: 20220725, end: 20220725

REACTIONS (5)
  - Erythema [None]
  - Pruritus [None]
  - Abdominal discomfort [None]
  - Heart rate decreased [None]
  - Infusion related reaction [None]

NARRATIVE: CASE EVENT DATE: 20220725
